FAERS Safety Report 15741191 (Version 1)
Quarter: 2018Q4

REPORT INFORMATION
  Report Type: Spontaneous
  Country: US (occurrence: US)
  Receive Date: 20181204
  Receipt Date: 20181204
  Transmission Date: 20190205
  Serious: Yes (Hospitalization)
  Sender: FDA-Public Use
  Company Number: None

PATIENT
  Age: 76 Year
  Sex: Male

DRUGS (1)
  1. ELIQUIS [Suspect]
     Active Substance: APIXABAN
     Indication: ANTICOAGULANT THERAPY

REACTIONS (17)
  - Mental impairment [None]
  - Facial paralysis [None]
  - Loss of consciousness [None]
  - Dizziness [None]
  - Swollen tongue [None]
  - Mouth swelling [None]
  - Speech disorder [None]
  - Balance disorder [None]
  - Asthenia [None]
  - Arthralgia [None]
  - Pharyngeal oedema [None]
  - Fatigue [None]
  - Wheezing [None]
  - Hemiparesis [None]
  - Chest pain [None]
  - Joint swelling [None]
  - Confusional state [None]

NARRATIVE: CASE EVENT DATE: 20181117
